FAERS Safety Report 8196741-3 (Version None)
Quarter: 2012Q1

REPORT INFORMATION
  Report Type: 
  Country: None (occurrence: None)
  Receive Date: 20120309
  Receipt Date: 20120305
  Transmission Date: 20120608
  Serious: Yes (Other)
  Sender: FDA-Public Use
  Company Number: PHFR2012GB001575

PATIENT
  Sex: Female

DRUGS (1)
  1. VALSARTAN [Suspect]
     Indication: HYPERTENSION
     Dosage: UNK UKN, UNK
     Dates: start: 20011201, end: 20120203

REACTIONS (3)
  - PRODUCT SUBSTITUTION ISSUE [None]
  - URTICARIA [None]
  - ANGIOEDEMA [None]
